FAERS Safety Report 25333206 (Version 1)
Quarter: 2025Q2

REPORT INFORMATION
  Report Type: Report from Study
  Country: CA (occurrence: CA)
  Receive Date: 20250519
  Receipt Date: 20250519
  Transmission Date: 20250717
  Serious: No
  Sender: TAIHO ONCOLOGY INC
  Company Number: CA-TAIHOP-2025-004951

PATIENT
  Sex: Male

DRUGS (2)
  1. FUTIBATINIB [Suspect]
     Active Substance: FUTIBATINIB
     Indication: Product used for unknown indication
     Route: 048
  2. FUTIBATINIB [Suspect]
     Active Substance: FUTIBATINIB
     Route: 048
     Dates: start: 20250428

REACTIONS (1)
  - Blood phosphorus increased [Recovering/Resolving]
